FAERS Safety Report 25633518 (Version 1)
Quarter: 2025Q3

REPORT INFORMATION
  Report Type: Spontaneous
  Country: US (occurrence: None)
  Receive Date: 20250801
  Receipt Date: 20250801
  Transmission Date: 20251021
  Serious: Yes (Other)
  Sender: FDA-CTU
  Company Number: None

PATIENT
  Sex: Female

DRUGS (11)
  1. SIMLANDI [Suspect]
     Active Substance: ADALIMUMAB-RYVK
     Indication: Rheumatoid arthritis
     Dosage: INJECT 1 PEN (40 MG) SUBCUTANEOUSLY ONCE EVERY 7 DAYS
     Route: 058
     Dates: start: 20250610
  2. CALTRATE + D3 [Concomitant]
  3. D2000 ULTRA STRENGTH [Concomitant]
  4. FENTANL CIT [Concomitant]
  5. FOLIC ACID [Concomitant]
     Active Substance: FOLIC ACID
  6. LIDOCAINE [Concomitant]
     Active Substance: LIDOCAINE
  7. LOSARTAN POTASSIUM [Concomitant]
     Active Substance: LOSARTAN POTASSIUM
  8. MELOXICAM [Concomitant]
     Active Substance: MELOXICAM
  9. METHOTREXATE [Concomitant]
     Active Substance: METHOTREXATE
  10. METOPROLOL SUCCINATE [Concomitant]
     Active Substance: METOPROLOL SUCCINATE
  11. OMNIPAQUE [Concomitant]
     Active Substance: IOHEXOL

REACTIONS (2)
  - Surgery [None]
  - Therapy interrupted [None]
